FAERS Safety Report 8476791-X (Version None)
Quarter: 2012Q2

REPORT INFORMATION
  Report Type: 
  Country: None (occurrence: None)
  Receive Date: 20120628
  Receipt Date: 20120627
  Transmission Date: 20120825
  Serious: Yes (Death)
  Sender: FDA-Public Use
  Company Number: AU-ROCHE-1082471

PATIENT
  Sex: Female

DRUGS (3)
  1. VEMURAFENIB [Suspect]
     Indication: MALIGNANT MELANOMA
     Route: 048
     Dates: start: 20120626, end: 20120626
  2. MORPHINE [Concomitant]
     Indication: NECK PAIN
     Route: 058
     Dates: start: 20120626, end: 20120626
  3. NALOXONE [Concomitant]
     Dates: start: 20120626, end: 20120626

REACTIONS (1)
  - DISEASE PROGRESSION [None]
